FAERS Safety Report 5068134-9 (Version None)
Quarter: 2006Q3

REPORT INFORMATION
  Report Type: 
  Country: None (occurrence: None)
  Receive Date: 20060802
  Receipt Date: 20060727
  Transmission Date: 20061208
  Serious: Yes (Other)
  Sender: FDA-Public Use
  Company Number: BW-BRISTOL-MYERS SQUIBB COMPANY-13457767

PATIENT

DRUGS (3)
  1. DIDANOSINE [Suspect]
     Indication: HIV INFECTION
     Dates: start: 20040820
  2. ZIDOVUDINE [Suspect]
     Indication: HIV INFECTION
     Dates: start: 20040820
  3. COMBIVIR [Suspect]
     Indication: HIV INFECTION
     Dates: start: 20040820

REACTIONS (2)
  - NEUTROPENIA [None]
  - WHITE BLOOD CELL COUNT DECREASED [None]
